FAERS Safety Report 9524433 (Version 1)
Quarter: 2013Q3

REPORT INFORMATION
  Report Type: Spontaneous
  Country: GB (occurrence: None)
  Receive Date: 20130912
  Receipt Date: 20130912
  Transmission Date: 20140515
  Serious: Yes (Hospitalization, Other)
  Sender: FDA-Public Use
  Company Number: AUR-APL-2013-07377

PATIENT
  Age: 88 Year
  Sex: Male

DRUGS (8)
  1. AMOXICILLIN (AMOXICILLIN) [Suspect]
     Indication: URINARY TRACT INFECTION
     Dosage: 750 MG (250 MG, 3 IN 1 D), ORAL
     Route: 048
     Dates: start: 201206, end: 20120624
  2. ATORVASTATIN (ATORVASTATIN) [Concomitant]
  3. RAMIPRIL (RAMIPRIL) [Concomitant]
  4. SERETIDE (SERETIDE) [Concomitant]
  5. SPIRIVA (TIOTROPIUM BROMIDE) [Concomitant]
  6. SPIRONOLACTONE (SPIRONOLACTONE) [Concomitant]
  7. TAMSULOSIN (TAMSULOSIN) [Concomitant]
  8. WARFARIN (WARFARIN) [Concomitant]

REACTIONS (3)
  - International normalised ratio increased [None]
  - Urinary tract infection [None]
  - Condition aggravated [None]
